FAERS Safety Report 6547106-9 (Version None)
Quarter: 2010Q1

REPORT INFORMATION
  Report Type: 
  Country: None (occurrence: None)
  Receive Date: 20100122
  Receipt Date: 20100114
  Transmission Date: 20100710
  Serious: Yes (Other)
  Sender: FDA-Public Use
  Company Number: DE-PFIZER INC-2009303199

PATIENT
  Sex: Female

DRUGS (1)
  1. AMLODIPINE BESYLATE [Suspect]
     Route: 048

REACTIONS (3)
  - BLOOD CALCIUM INCREASED [None]
  - FATIGUE [None]
  - MUSCULAR WEAKNESS [None]
